FAERS Safety Report 6189232-2 (Version None)
Quarter: 2009Q2

REPORT INFORMATION
  Report Type: 
  Country: None (occurrence: None)
  Receive Date: 20090512
  Receipt Date: 20090506
  Transmission Date: 20091009
  Serious: Yes (Hospitalization)
  Sender: FDA-Public Use
  Company Number: GXKR2009DE05515

PATIENT
  Age: 73 Year
  Sex: Female
  Weight: 83 kg

DRUGS (8)
  1. FALITHROM   (NGX)  (PHENPROCOUMON) [Suspect]
     Indication: ATRIAL FIBRILLATION
     Dosage: 3MG, QD, ORAL
     Route: 048
     Dates: start: 20080602, end: 20080909
  2. OMEPRAZOL       (OMEPRAZOLE) CAPSULE [Suspect]
     Dosage: 20 MG, QD, ORAL
     Route: 048
     Dates: start: 20080501
  3. SIMVAHEXAL         (SIMVASTATIN) FILM-COATED TABLET, 20MG [Suspect]
     Indication: HYPERCHOLESTEROLAEMIA
     Dosage: 20 MG, QD, ORAL
     Route: 048
     Dates: start: 20080501
  4. APROVEL           (IRBESARTAN) , 150 MG [Concomitant]
  5. CARVEDILOL         (CARVEDILOL) , 25MG [Concomitant]
  6. CALCITROL        (CALCIUM CARBONATE, ERGOCALCIFEROL, RETINOL) [Concomitant]
  7. DIGITOXIN INJ [Concomitant]
  8. MIRCERA        (METHOXY POLYETHYLENE GLYCOL-EPOETIN BETA) [Concomitant]

REACTIONS (1)
  - HAEMATURIA [None]
